FAERS Safety Report 9956116 (Version 1)
Quarter: 2014Q1

REPORT INFORMATION
  Report Type: Report from Study
  Country: US (occurrence: US)
  Receive Date: 20140304
  Receipt Date: 20140304
  Transmission Date: 20141002
  Serious: No
  Sender: FDA-Public Use
  Company Number: US-ABBVIE-13P-163-1086797-00

PATIENT
  Age: 35 Year
  Sex: Female

DRUGS (10)
  1. HUMIRA [Suspect]
     Indication: CROHN^S DISEASE
     Dates: start: 20130503
  2. LEVOTHYROXINE [Concomitant]
     Indication: HYPOTHYROIDISM
  3. ZOFRAN [Concomitant]
     Indication: NAUSEA
  4. ELMIRON [Concomitant]
     Indication: CYSTITIS INTERSTITIAL
  5. BLADDER FLUSH W/HEPARIN, SODIUM BICARB, LIDOCAINE, STERILE WATER [Concomitant]
     Indication: CYSTITIS INTERSTITIAL
     Dosage: DAILY VIA CATHETER
  6. SODIUM BICARBONATE [Concomitant]
     Indication: MIGRAINE PROPHYLAXIS
  7. CONTRACEPTIVES [Concomitant]
     Indication: PRODUCT USED FOR UNKNOWN INDICATION
     Dosage: DAILY
  8. CLARITIN [Concomitant]
     Indication: SEASONAL ALLERGY
     Dosage: DAILY
  9. PREDNISONE [Concomitant]
     Indication: CROHN^S DISEASE
     Dosage: TAPERING DOSE
  10. TRAMADOL HCL [Concomitant]
     Indication: INSOMNIA
     Dosage: EVERY NIGHT AT BEDTIME

REACTIONS (4)
  - Injection site bruising [Not Recovered/Not Resolved]
  - Nausea [Not Recovered/Not Resolved]
  - Headache [Not Recovered/Not Resolved]
  - Blood potassium decreased [Not Recovered/Not Resolved]
